FAERS Safety Report 18541679 (Version 8)
Quarter: 2023Q4

REPORT INFORMATION
  Report Type: Report from Study
  Country: BR (occurrence: BR)
  Receive Date: 20201124
  Receipt Date: 20231101
  Transmission Date: 20240110
  Serious: Yes (Other)
  Sender: FDA-Public Use
  Company Number: BR-TAKEDA-BR202019975

PATIENT
  Sex: Male
  Weight: 75 kg

DRUGS (7)
  1. HEMO-8R [Suspect]
     Active Substance: ANTIHEMOPHILIC FACTOR, HUMAN RECOMBINANT
     Indication: Factor VIII deficiency
     Dosage: 4000 INTERNATIONAL UNIT, 3/WEEK
     Route: 042
     Dates: start: 2011, end: 2013
  2. HEMO-8R [Suspect]
     Active Substance: ANTIHEMOPHILIC FACTOR, HUMAN RECOMBINANT
     Dosage: 2250 INTERNATIONAL UNIT, Q2WEEKS
     Route: 042
     Dates: start: 20130101
  3. HEMO-8R [Suspect]
     Active Substance: ANTIHEMOPHILIC FACTOR, HUMAN RECOMBINANT
     Dosage: 2500 INTERNATIONAL UNIT, Q2WEEKS
     Route: 042
  4. HEMO-8R [Suspect]
     Active Substance: ANTIHEMOPHILIC FACTOR, HUMAN RECOMBINANT
     Dosage: 2500 INTERNATIONAL UNIT, Q2WEEKS
     Route: 042
  5. HEMO-8R [Suspect]
     Active Substance: ANTIHEMOPHILIC FACTOR, HUMAN RECOMBINANT
     Dosage: 2500 INTERNATIONAL UNIT, Q2WEEKS
     Route: 042
  6. HEMO-8R [Suspect]
     Active Substance: ANTIHEMOPHILIC FACTOR, HUMAN RECOMBINANT
     Dosage: 2500 INTERNATIONAL UNIT, 2/WEEK
     Route: 042
  7. Anador [Concomitant]
     Indication: Headache
     Dosage: UNK

REACTIONS (12)
  - Mouth haemorrhage [Unknown]
  - Spontaneous haemorrhage [Unknown]
  - Haemorrhagic diathesis [Unknown]
  - Haemorrhage [Unknown]
  - Epistaxis [Recovered/Resolved]
  - Haemarthrosis [Recovered/Resolved]
  - Internal haemorrhage [Recovered/Resolved]
  - Contusion [Recovered/Resolved]
  - Anal haemorrhage [Recovered/Resolved]
  - Arthralgia [Unknown]
  - Weight increased [Unknown]
  - Joint swelling [Recovered/Resolved]

NARRATIVE: CASE EVENT DATE: 20110101
